FAERS Safety Report 7437404-9 (Version None)
Quarter: 2011Q2

REPORT INFORMATION
  Report Type: 
  Country: None (occurrence: None)
  Receive Date: 20110426
  Receipt Date: 20110412
  Transmission Date: 20111010
  Serious: No
  Sender: FDA-Public Use
  Company Number: US-JNJFOC-20110406242

PATIENT
  Age: 62 Year
  Sex: Female

DRUGS (1)
  1. DURAGESIC [Suspect]
     Indication: ILL-DEFINED DISORDER
     Route: 062

REACTIONS (8)
  - HEADACHE [None]
  - WRONG TECHNIQUE IN DRUG USAGE PROCESS [None]
  - NAUSEA [None]
  - DRUG ADMINISTERED AT INAPPROPRIATE SITE [None]
  - VOMITING [None]
  - PAIN [None]
  - PRODUCT ADHESION ISSUE [None]
  - WITHDRAWAL SYNDROME [None]
